FAERS Safety Report 11113260 (Version 1)
Quarter: 2015Q2

REPORT INFORMATION
  Report Type: Spontaneous
  Country: NL (occurrence: NL)
  Receive Date: 20150514
  Receipt Date: 20150514
  Transmission Date: 20150821
  Serious: Yes (Hospitalization)
  Sender: FDA-Public Use
  Company Number: NL-AMGEN-NLDSP2015046102

PATIENT
  Age: 71 Year
  Sex: Male

DRUGS (5)
  1. RITUXIMAB [Suspect]
     Active Substance: RITUXIMAB
     Indication: MANTLE CELL LYMPHOMA
     Dosage: 750 MG, UNK
     Route: 065
     Dates: start: 20100909, end: 20110210
  2. DOXORUBICIN [Suspect]
     Active Substance: DOXORUBICIN
     Indication: MANTLE CELL LYMPHOMA
     Dosage: 100 MG, UNK
     Route: 065
     Dates: start: 20100909, end: 20110210
  3. VINCRISTINE [Suspect]
     Active Substance: VINCRISTINE
     Indication: MANTLE CELL LYMPHOMA
     Dosage: 2 MG, UNK
     Route: 065
     Dates: start: 20100909, end: 20110210
  4. CYCLOPHOSPHAMIDE. [Suspect]
     Active Substance: CYCLOPHOSPHAMIDE
     Indication: MANTLE CELL LYMPHOMA
     Dosage: 1500 MG, UNK
     Route: 065
     Dates: start: 20100909, end: 20110210
  5. NEULASTA [Suspect]
     Active Substance: PEGFILGRASTIM
     Indication: MANTLE CELL LYMPHOMA
     Dosage: 6 MG, UNK
     Route: 065
     Dates: start: 20101020, end: 20110211

REACTIONS (1)
  - Sinusitis [Recovered/Resolved]

NARRATIVE: CASE EVENT DATE: 20110218
